FAERS Safety Report 6070235-3 (Version None)
Quarter: 2009Q1

REPORT INFORMATION
  Report Type: 
  Country: None (occurrence: None)
  Receive Date: 20090209
  Receipt Date: 20090128
  Transmission Date: 20090719
  Serious: Yes (Other)
  Sender: FDA-Public Use
  Company Number: US-ROCHE-583076

PATIENT
  Sex: Female

DRUGS (2)
  1. PEG-INTERFERON A-2A (RO 25-8310) [Suspect]
     Dosage: FORM: PRE-FILLED SYRINGE, THE PATIENT IS IN WEEK 45 OF TREATMENT.
     Route: 065
     Dates: start: 20080320
  2. RIBAVIRIN [Suspect]
     Dosage: THE PATIENT IS IN WEEK 45 OF TREATMENT.
     Route: 065
     Dates: start: 20080320

REACTIONS (10)
  - CHRONIC OBSTRUCTIVE PULMONARY DISEASE [None]
  - CONDITION AGGRAVATED [None]
  - FATIGUE [None]
  - GENITAL HERPES [None]
  - GINGIVAL PAIN [None]
  - MEMORY IMPAIRMENT [None]
  - NIGHT SWEATS [None]
  - VERTIGO [None]
  - WEIGHT DECREASED [None]
  - WHITE BLOOD CELL COUNT DECREASED [None]
